FAERS Safety Report 8287724-3 (Version None)
Quarter: 2012Q2

REPORT INFORMATION
  Report Type: 
  Country: None (occurrence: None)
  Receive Date: 20120416
  Receipt Date: 20120412
  Transmission Date: 20120825
  Serious: No
  Sender: FDA-Public Use
  Company Number: US-TEVA-333075USA

PATIENT
  Sex: Male
  Weight: 54.48 kg

DRUGS (1)
  1. PROAIR HFA [Suspect]
     Indication: ASTHMA
     Route: 055
     Dates: start: 20120410

REACTIONS (2)
  - CHEST PAIN [None]
  - MUSCULOSKELETAL DISCOMFORT [None]
